FAERS Safety Report 11897963 (Version 3)
Quarter: 2016Q1

REPORT INFORMATION
  Report Type: Spontaneous
  Country: CA (occurrence: CA)
  Receive Date: 20160108
  Receipt Date: 20160204
  Transmission Date: 20160526
  Serious: Yes (Hospitalization)
  Sender: FDA-Public Use
  Company Number: CA-ROCHE-1691303

PATIENT
  Age: 66 Year
  Sex: Male

DRUGS (13)
  1. SINGULAIR [Concomitant]
     Active Substance: MONTELUKAST SODIUM
  2. BUDESONIDE. [Concomitant]
     Active Substance: BUDESONIDE
  3. XOLAIR [Suspect]
     Active Substance: OMALIZUMAB
     Route: 058
     Dates: start: 20150303
  4. SULFASALAZINE. [Concomitant]
     Active Substance: SULFASALAZINE
  5. VENTOLIN [Concomitant]
     Active Substance: ALBUTEROL SULFATE
  6. XOLAIR [Suspect]
     Active Substance: OMALIZUMAB
     Route: 058
     Dates: start: 20141223
  7. AZITHROMYCIN ANHYDROUS. [Concomitant]
     Active Substance: AZITHROMYCIN ANHYDROUS
  8. ALVESCO [Concomitant]
     Active Substance: CICLESONIDE
  9. PREDNISONE. [Concomitant]
     Active Substance: PREDNISONE
  10. SULFADIAZINE. [Concomitant]
     Active Substance: SULFADIAZINE
  11. XOLAIR [Suspect]
     Active Substance: OMALIZUMAB
     Indication: ASTHMA
     Route: 058
     Dates: start: 20141028
  12. DAXAS [Concomitant]
     Active Substance: ROFLUMILAST
  13. ADVAIR HFA [Concomitant]
     Active Substance: FLUTICASONE PROPIONATE\SALMETEROL XINAFOATE

REACTIONS (8)
  - Pneumonia [Unknown]
  - Heart rate increased [Unknown]
  - Productive cough [Unknown]
  - Fall [Unknown]
  - Sputum discoloured [Unknown]
  - Asthma [Unknown]
  - Influenza [Unknown]
  - Blood pressure increased [Unknown]

NARRATIVE: CASE EVENT DATE: 20141029
